FAERS Safety Report 10084490 (Version 3)
Quarter: 2014Q2

REPORT INFORMATION
  Report Type: Spontaneous
  Country: PL (occurrence: PL)
  Receive Date: 20140417
  Receipt Date: 20140514
  Transmission Date: 20141212
  Serious: Yes (Other)
  Sender: FDA-Public Use
  Company Number: PL-ROCHE-1381850

PATIENT
  Age: 55 Year
  Sex: Male
  Weight: 81 kg

DRUGS (3)
  1. ZELBORAF [Suspect]
     Indication: MALIGNANT MELANOMA
     Dosage: 2X960MG
     Route: 048
     Dates: start: 20131216
  2. ZELBORAF [Suspect]
     Dosage: 2X720MG
     Route: 048
     Dates: start: 20140128, end: 20140311
  3. ZELBORAF [Suspect]
     Dosage: 2X480MG
     Route: 048
     Dates: start: 20140401, end: 20140401

REACTIONS (7)
  - Hepatic enzyme increased [Recovered/Resolved]
  - Blood bilirubin increased [Recovered/Resolved]
  - Aspartate aminotransferase increased [Recovered/Resolved]
  - Alanine aminotransferase increased [Recovered/Resolved]
  - Gamma-glutamyltransferase increased [Recovered/Resolved]
  - Blood lactate dehydrogenase increased [Recovered/Resolved]
  - Hepatic function abnormal [Recovered/Resolved]
